FAERS Safety Report 7985970-7 (Version None)
Quarter: 2011Q4

REPORT INFORMATION
  Report Type: 
  Country: None (occurrence: None)
  Receive Date: 20111216
  Receipt Date: 20111205
  Transmission Date: 20120403
  Serious: Yes (Hospitalization, Other)
  Sender: FDA-Public Use
  Company Number: US-MERCK-1107USA03606

PATIENT
  Age: 71 Year
  Sex: Female
  Weight: 60 kg

DRUGS (10)
  1. FOSAMAX [Suspect]
     Indication: OSTEOPOROSIS
     Route: 048
     Dates: start: 20030101, end: 20080101
  2. MELOXICAM [Concomitant]
     Route: 065
     Dates: start: 20070101
  3. CALCIUM (UNSPECIFIED) [Concomitant]
     Route: 065
     Dates: start: 19810101
  4. FELDENE [Concomitant]
     Route: 065
     Dates: start: 19810101
  5. SIMVASTATIN [Concomitant]
     Route: 065
     Dates: start: 20080101
  6. DIETARY SUPPLEMENT (UNSPECIFIED) [Concomitant]
     Route: 065
     Dates: start: 20040101
  7. MS CONTIN [Concomitant]
     Route: 065
     Dates: start: 20000101
  8. VITAMINS (UNSPECIFIED) [Concomitant]
     Route: 065
     Dates: start: 19810101
  9. VYTORIN [Concomitant]
     Route: 048
     Dates: start: 20050101, end: 20080101
  10. ZOCOR [Concomitant]
     Route: 048
     Dates: start: 20010101

REACTIONS (46)
  - OSTEOARTHRITIS [None]
  - DRY SKIN [None]
  - SEASONAL ALLERGY [None]
  - VERTIGO [None]
  - HYPERTENSION [None]
  - SKIN LESION [None]
  - RADICULOPATHY [None]
  - MUSCULAR WEAKNESS [None]
  - FEMUR FRACTURE [None]
  - BREAST CANCER [None]
  - KYPHOSIS [None]
  - SYNCOPE [None]
  - MUSCULOSKELETAL PAIN [None]
  - ARTHRALGIA [None]
  - SYNOVIAL CYST [None]
  - FATIGUE [None]
  - BACK PAIN [None]
  - CONSTIPATION [None]
  - FALL [None]
  - INCREASED TENDENCY TO BRUISE [None]
  - HYPOACUSIS [None]
  - LUMBAR SPINAL STENOSIS [None]
  - PHOTOPHOBIA [None]
  - CEREBRAL SMALL VESSEL ISCHAEMIC DISEASE [None]
  - PERIARTHRITIS [None]
  - ADVERSE EVENT [None]
  - CATARACT [None]
  - CORONARY ARTERY DISEASE [None]
  - DECREASED APPETITE [None]
  - SEPSIS [None]
  - VERTEBRAL FORAMINAL STENOSIS [None]
  - HAEMORRHOIDS [None]
  - TRANSIENT ISCHAEMIC ATTACK [None]
  - ASTHENIA [None]
  - ROTATOR CUFF SYNDROME [None]
  - EYE IRRITATION [None]
  - MYOCARDIAL INFARCTION [None]
  - ANXIETY [None]
  - IODINE ALLERGY [None]
  - TONSILLAR DISORDER [None]
  - MUSCLE SPASMS [None]
  - MYALGIA [None]
  - ARTHROPATHY [None]
  - INTERVERTEBRAL DISC DEGENERATION [None]
  - DEPRESSION [None]
  - UTERINE DISORDER [None]
